FAERS Safety Report 6895050-X (Version None)
Quarter: 2010Q3

REPORT INFORMATION
  Report Type: 
  Country: None (occurrence: None)
  Receive Date: 20100802
  Receipt Date: 20100727
  Transmission Date: 20110219
  Serious: Yes (Hospitalization)
  Sender: FDA-Public Use
  Company Number: GB-WYE-G06388710

PATIENT
  Sex: Male

DRUGS (4)
  1. GEMTUZUMAB OZOGAMICIN [Suspect]
     Indication: ACUTE MYELOID LEUKAEMIA
     Dosage: ONE DOSE IN TOTAL IN COURSE 1
     Route: 042
     Dates: start: 20090723, end: 20090723
  2. GEMTUZUMAB OZOGAMICIN [Suspect]
     Dosage: ONE DOSE IN TOTAL IN COURSE 2
     Route: 042
     Dates: start: 20090825, end: 20090825
  3. ARA-C [Concomitant]
     Indication: ACUTE MYELOID LEUKAEMIA
     Dosage: UNKNOWN
     Route: 042
     Dates: start: 20090723
  4. ARA-C [Concomitant]
     Dosage: UNKNOWN
     Route: 042
     Dates: start: 20090825, end: 20090825

REACTIONS (4)
  - CHILLS [None]
  - HEADACHE [None]
  - INFUSION RELATED REACTION [None]
  - PYREXIA [None]
